FAERS Safety Report 6179552-X (Version None)
Quarter: 2009Q2

REPORT INFORMATION
  Report Type: 
  Country: None (occurrence: None)
  Receive Date: 20090505
  Receipt Date: 20090420
  Transmission Date: 20091009
  Serious: Yes (Death)
  Sender: FDA-Public Use
  Company Number: GB-GENENTECH-282007

PATIENT
  Sex: Male

DRUGS (7)
  1. BEVACIZUMAB [Suspect]
     Indication: PANCREATIC CARCINOMA
     Dosage: 5 MG/KG, Q2W
     Route: 042
     Dates: start: 20081216
  2. ERLOTINIB [Suspect]
     Indication: PANCREATIC CARCINOMA
     Dosage: 100 MG, UNK
     Route: 048
     Dates: start: 20081216
  3. CAPECITABINE [Suspect]
     Indication: PANCREATIC CARCINOMA
     Dosage: UNK
     Route: 048
     Dates: start: 20081216
  4. GEMCITABINE HCL [Suspect]
     Indication: PANCREATIC CARCINOMA
     Dosage: 1000 MG/M2, 3/MONTH
     Route: 042
     Dates: start: 20081216
  5. ONDANSETRON [Concomitant]
     Indication: DRUG USE FOR UNKNOWN INDICATION
  6. LEVOMEPROMAZINE [Concomitant]
     Indication: DRUG USE FOR UNKNOWN INDICATION
  7. LANSOPRAZOLE [Concomitant]
     Indication: DRUG USE FOR UNKNOWN INDICATION

REACTIONS (1)
  - INTESTINAL OBSTRUCTION [None]
